FAERS Safety Report 16499794 (Version 1)
Quarter: 2019Q3

REPORT INFORMATION
  Report Type: Spontaneous
  Country: CH (occurrence: CH)
  Receive Date: 20190701
  Receipt Date: 20190701
  Transmission Date: 20191004
  Serious: Yes (Other)
  Sender: FDA-Public Use
  Company Number: CH-MACLEODS PHARMACEUTICALS US LTD-MAC2019021856

PATIENT

DRUGS (3)
  1. MONTELUKAST [Suspect]
     Active Substance: MONTELUKAST SODIUM
     Indication: ASTHMA
     Dosage: UNK,CHEWABLE TABLET
     Route: 048
  2. SERETIDE [Concomitant]
     Active Substance: FLUTICASONE PROPIONATE\SALMETEROL XINAFOATE
     Indication: ASTHMA
     Dosage: UNK,FOR LAST FEW YEARS
     Route: 065
  3. VENTOLIN [Concomitant]
     Active Substance: ALBUTEROL SULFATE
     Indication: ASTHMA
     Dosage: ,FOR LAST FEW YEARSUNK
     Route: 065

REACTIONS (6)
  - Irritability [Recovering/Resolving]
  - Neuropsychiatric symptoms [Recovering/Resolving]
  - Disturbance in attention [Recovering/Resolving]
  - Educational problem [Recovering/Resolving]
  - Nervousness [Recovering/Resolving]
  - Restlessness [Recovering/Resolving]
